FAERS Safety Report 8246426-X (Version None)
Quarter: 2012Q1

REPORT INFORMATION
  Report Type: 
  Country: None (occurrence: None)
  Receive Date: 20120330
  Receipt Date: 20120320
  Transmission Date: 20120608
  Serious: Yes (Other)
  Sender: FDA-Public Use
  Company Number: US-JNJFOC-20120309964

PATIENT
  Sex: Female
  Weight: 90.72 kg

DRUGS (15)
  1. PREDNISONE TAB [Concomitant]
     Route: 048
     Dates: start: 20120101, end: 20120101
  2. PREDNISONE TAB [Concomitant]
     Route: 048
     Dates: start: 20120101, end: 20120101
  3. MULTI-VITAMINS [Concomitant]
     Route: 065
  4. METHOTREXATE [Concomitant]
     Indication: RHEUMATOID ARTHRITIS
     Route: 048
  5. FLUOXETINE [Concomitant]
     Indication: AFFECTIVE DISORDER
     Route: 048
  6. PREDNISONE TAB [Concomitant]
     Route: 048
     Dates: start: 20120101, end: 20120101
  7. SULFAMETHOXAZOLE AND TRIMETHOPRIM [Suspect]
     Indication: NASOPHARYNGITIS
     Route: 048
     Dates: start: 20120315
  8. OMEPRAZOLE [Concomitant]
     Indication: GASTRIC DISORDER
     Route: 048
  9. VITAMIN B-12 [Concomitant]
     Route: 048
  10. NABUMETONE [Concomitant]
     Indication: PAIN
     Dosage: 2000MG/TABLET/500MG/2TABLET
     Route: 048
  11. FOLIC ACID [Concomitant]
     Route: 065
  12. REMICADE [Suspect]
     Indication: RHEUMATOID ARTHRITIS
     Dosage: 3RD INFUSION
     Route: 042
     Dates: start: 20120306
  13. REMICADE [Suspect]
     Route: 042
     Dates: start: 20120207
  14. ZITHROMAX [Suspect]
     Indication: LUNG INFILTRATION
     Route: 065
     Dates: start: 20120305, end: 20120315
  15. VITAMIN [Concomitant]
     Route: 065

REACTIONS (7)
  - LUNG INFILTRATION [None]
  - NASOPHARYNGITIS [None]
  - EAR DISORDER [None]
  - OROPHARYNGEAL PAIN [None]
  - ADVERSE EVENT [None]
  - ERYTHEMA [None]
  - MALAISE [None]
